FAERS Safety Report 6641946-3 (Version None)
Quarter: 2010Q1

REPORT INFORMATION
  Report Type: 
  Country: None (occurrence: None)
  Receive Date: 20100319
  Receipt Date: 20100311
  Transmission Date: 20100710
  Serious: Yes (Other)
  Sender: FDA-Public Use
  Company Number: PHHO2010FR03900

PATIENT
  Sex: Male

DRUGS (7)
  1. STI571/CGP57148B T35717+TAB [Suspect]
     Indication: ACUTE LYMPHOCYTIC LEUKAEMIA
     Dosage: UNK
  2. IRRADIATION [Concomitant]
     Dosage: 12 GY
     Dates: start: 20090608, end: 20090610
  3. ENDOXAN [Concomitant]
     Dosage: 60 MG/KG
     Route: 042
     Dates: start: 20090610, end: 20090611
  4. EMEND [Concomitant]
     Indication: NAUSEA
     Dosage: UNK
     Route: 042
     Dates: start: 20090610
  5. LARGACTIL [Concomitant]
  6. CYCLOSPORINE [Concomitant]
     Indication: PROPHYLAXIS
     Dosage: UNK
     Dates: start: 20090616
  7. METHOTREXATE [Concomitant]
     Indication: PROPHYLAXIS
     Dosage: UNK
     Dates: start: 20090616

REACTIONS (4)
  - INFECTION [None]
  - MUCOSAL INFLAMMATION [None]
  - PYREXIA [None]
  - SKIN LESION [None]
